FAERS Safety Report 7973871-X (Version None)
Quarter: 2011Q4

REPORT INFORMATION
  Report Type: 
  Country: None (occurrence: None)
  Receive Date: 20111213
  Receipt Date: 20111205
  Transmission Date: 20120403
  Serious: Yes (Hospitalization)
  Sender: FDA-Public Use
  Company Number: DE-ROCHE-1020493

PATIENT
  Sex: Female
  Weight: 86.7 kg

DRUGS (8)
  1. ACTEMRA [Suspect]
     Indication: RHEUMATOID ARTHRITIS
     Route: 042
     Dates: start: 20110112, end: 20111010
  2. PREDNISOLONE [Concomitant]
     Indication: RHEUMATOID ARTHRITIS
     Route: 048
  3. TRAMADOL HCL [Concomitant]
     Indication: PAIN
     Route: 048
  4. CITALOPRAM [Concomitant]
     Indication: DEPRESSION
  5. ACTEMRA [Suspect]
     Route: 042
     Dates: end: 20111020
  6. METHOTREXATE SODIUM [Suspect]
     Indication: RHEUMATOID ARTHRITIS
     Route: 048
     Dates: start: 20060214, end: 20111101
  7. ARCOXIA [Concomitant]
     Indication: RHEUMATOID ARTHRITIS
     Route: 048
     Dates: start: 20060701
  8. LERCANIDIPINE [Concomitant]
     Indication: HYPERTENSION
     Route: 048

REACTIONS (2)
  - ABSCESS [None]
  - NECROSIS [None]
